FAERS Safety Report 4607059-7 (Version None)
Quarter: 2005Q1

REPORT INFORMATION
  Report Type: 
  Country: None (occurrence: None)
  Receive Date: 20050314
  Receipt Date: 20050222
  Transmission Date: 20050727
  Serious: Yes (Other)
  Sender: FDA-Public Use
  Company Number: JP-BRISTOL-MYERS SQUIBB COMPANY-12878377

PATIENT
  Age: 68 Year
  Sex: Male

DRUGS (9)
  1. GATIFLO TABS 100 MG [Suspect]
     Indication: UPPER RESPIRATORY TRACT INFLAMMATION
     Dosage: 22-JAN-2005 TO 26-JAN-2005 (5 DAYS), RESTARTED ON 28-JAN-2005 TO 28-JAN-2005 (1 DAY).
     Route: 048
     Dates: start: 20050122, end: 20050128
  2. PELEX [Concomitant]
     Indication: PHARYNGITIS
     Dosage: 22-JAN-2005 TO 26-JAN-2005 (5 DAYS), RESTARTED ON 28-JAN-2005 TO 28-JAN-2005 (1 DAY).
     Route: 048
     Dates: start: 20050122, end: 20050128
  3. LEBENIN [Concomitant]
     Indication: PHARYNGITIS
     Dosage: 22-JAN-2005 TO 26-JAN-2005 (5 DAYS), RESTARTED ON 28-JAN-2005 TO 28-JAN-2005 (1 DAY).
     Route: 048
     Dates: start: 20050122, end: 20050128
  4. ASDRIN [Concomitant]
     Route: 058
     Dates: start: 20050122, end: 20050122
  5. LACTEC-G [Concomitant]
     Dosage: 22-JAN-2005 TO 22-JAN-2005 (1 DAYS), RESTARTED ON 28-JAN-2005 TO 28-JAN-2005 (1 DAY).
     Route: 042
     Dates: start: 20050122, end: 20050128
  6. NORVASC [Concomitant]
     Route: 048
     Dates: start: 19970714
  7. DIOVAN [Concomitant]
     Route: 048
     Dates: start: 20040223
  8. ETIZOLAM [Concomitant]
     Route: 048
     Dates: start: 20020328
  9. ADETPHOS [Concomitant]
     Route: 048
     Dates: start: 20040228

REACTIONS (7)
  - BLOOD URINE PRESENT [None]
  - FACE OEDEMA [None]
  - OEDEMA [None]
  - OEDEMA PERIPHERAL [None]
  - PLEURAL EFFUSION [None]
  - PROTEIN URINE PRESENT [None]
  - RENAL IMPAIRMENT [None]
